FAERS Safety Report 11917978 (Version 2)
Quarter: 2016Q1

REPORT INFORMATION
  Report Type: Spontaneous
  Country: IT (occurrence: IT)
  Receive Date: 20160114
  Receipt Date: 20160208
  Transmission Date: 20160526
  Serious: Yes (Death, Hospitalization)
  Sender: FDA-Public Use
  Company Number: IT-009507513-1601ITA001224

PATIENT
  Age: 59 Year
  Sex: Male
  Weight: 86 kg

DRUGS (4)
  1. REBETOL [Suspect]
     Active Substance: RIBAVIRIN
     Indication: CHRONIC HEPATITIS C
     Dosage: 1000 MG DAILY
     Route: 048
     Dates: start: 20151123, end: 20151210
  2. LUVION [Concomitant]
     Active Substance: CANRENONE
     Dosage: 2 TABLETS AT LUNCH TIME
     Route: 048
     Dates: start: 20151123, end: 20151204
  3. FUROSEMIDE. [Concomitant]
     Active Substance: FUROSEMIDE
     Indication: ASCITES
     Dosage: UNK
     Route: 048
  4. SOVALDI [Suspect]
     Active Substance: SOFOSBUVIR
     Indication: CHRONIC HEPATITIS C
     Dosage: 400 MG, QD
     Route: 048
     Dates: start: 20151123, end: 20151210

REACTIONS (4)
  - Electrolyte imbalance [Fatal]
  - Renal impairment [Fatal]
  - Condition aggravated [Fatal]
  - Erysipelas [Fatal]

NARRATIVE: CASE EVENT DATE: 20151204
